FAERS Safety Report 5237349-9 (Version None)
Quarter: 2007Q1

REPORT INFORMATION
  Report Type: 
  Country: None (occurrence: None)
  Receive Date: 20070213
  Receipt Date: 20070201
  Transmission Date: 20070707
  Serious: Yes (Hospitalization)
  Sender: FDA-Public Use
  Company Number: GB-NOVOPROD-258969

PATIENT
  Sex: Female
  Weight: 37.2 kg

DRUGS (2)
  1. MIXTARD HUMAN 70/30 [Suspect]
     Indication: DIABETES MELLITUS INSULIN-DEPENDENT
     Dosage: 22.5 IU, QD
     Route: 058
     Dates: start: 20060426, end: 20061207
  2. NOVOMIX 30 [Concomitant]

REACTIONS (4)
  - ERYTHEMA [None]
  - INJECTION SITE REACTION [None]
  - LOCAL SWELLING [None]
  - PRURITUS [None]
